FAERS Safety Report 5642643-3 (Version None)
Quarter: 2008Q1

REPORT INFORMATION
  Report Type: 
  Country: None (occurrence: None)
  Receive Date: 20080226
  Receipt Date: 20080215
  Transmission Date: 20080703
  Serious: No
  Sender: FDA-Public Use
  Company Number: CFNTY-196

PATIENT
  Age: 68 Year
  Sex: Female

DRUGS (1)
  1. CEFDITOREN PIVOXIL [Suspect]
     Dosage: 300 MG, PO
     Route: 048

REACTIONS (1)
  - INTERSTITIAL LUNG DISEASE [None]
